FAERS Safety Report 7315404-7 (Version None)
Quarter: 2011Q1

REPORT INFORMATION
  Report Type: 
  Country: None (occurrence: None)
  Receive Date: 20110218
  Receipt Date: 20110218
  Transmission Date: 20110831
  Serious: Yes (Hospitalization)
  Sender: FDA-Public Use
  Company Number: None

PATIENT
  Age: 54 Year
  Sex: Female
  Weight: 127.0072 kg

DRUGS (6)
  1. PRILOSEC [Concomitant]
  2. DILAUDID [Suspect]
     Indication: MUSCULOSKELETAL PAIN
     Dosage: 4 MG ONCE IV RECENT
     Route: 042
  3. ETODOLAC [Concomitant]
  4. LISINOPRIL [Concomitant]
  5. DILAUDID [Suspect]
     Indication: BACK PAIN
     Dosage: 4 MG ONCE IV RECENT
     Route: 042
  6. HYDROCHLOROTHIAZIDE [Concomitant]

REACTIONS (6)
  - MUSCULOSKELETAL PAIN [None]
  - SOMNOLENCE [None]
  - BACK PAIN [None]
  - RESPIRATORY ARREST [None]
  - RESPIRATORY ACIDOSIS [None]
  - RESPIRATORY FAILURE [None]
